FAERS Safety Report 17842882 (Version 2)
Quarter: 2020Q3

REPORT INFORMATION
  Report Type: Report from Study
  Country: None (occurrence: CA)
  Receive Date: 20200530
  Receipt Date: 20200731
  Transmission Date: 20201103
  Serious: Yes (Death, Other)
  Sender: FDA-Public Use
  Company Number: CA-ABBVIE-20K-028-3424711-00

PATIENT
  Age: 61 Year
  Sex: Male
  Weight: 90.1 kg

DRUGS (1)
  1. VENETOCLAX. [Suspect]
     Active Substance: VENETOCLAX
     Indication: CHRONIC LYMPHOCYTIC LEUKAEMIA
     Route: 048
     Dates: start: 20191017, end: 20200523

REACTIONS (16)
  - Abdominal pain [Unknown]
  - Abdominal distension [Unknown]
  - Ascites [Unknown]
  - Hepatic lesion [Unknown]
  - Pulmonary mass [Unknown]
  - Generalised oedema [Unknown]
  - Cough [Unknown]
  - Splenomegaly [Not Recovered/Not Resolved]
  - Lymphatic obstruction [Unknown]
  - Renal disorder [Unknown]
  - Lymphadenopathy [Unknown]
  - Hepatic mass [Unknown]
  - Atelectasis [Unknown]
  - Pleural effusion [Unknown]
  - Diffuse large B-cell lymphoma [Fatal]
  - Venous occlusion [Unknown]

NARRATIVE: CASE EVENT DATE: 202004
